FAERS Safety Report 10538012 (Version 1)
Quarter: 2014Q4

REPORT INFORMATION
  Report Type: Spontaneous
  Country: US (occurrence: US)
  Receive Date: 20141023
  Receipt Date: 20141023
  Transmission Date: 20150529
  Serious: No
  Sender: FDA-Public Use
  Company Number: US-ENDO PHARMACEUTICALS INC.-AMIT20140014

PATIENT
  Sex: Female

DRUGS (1)
  1. AMITRIPTYLINE HCL 10MG [Suspect]
     Active Substance: AMITRIPTYLINE
     Indication: NEURALGIA
     Route: 048

REACTIONS (1)
  - Drug ineffective [Not Recovered/Not Resolved]
